APPROVED DRUG PRODUCT: TRIMOX
Active Ingredient: AMOXICILLIN
Strength: 250MG
Dosage Form/Route: CAPSULE;ORAL
Application: A063099 | Product #001
Applicant: APOTHECON INC DIV BRISTOL MYERS SQUIBB
Approved: Mar 20, 1992 | RLD: No | RS: No | Type: DISCN